FAERS Safety Report 24354049 (Version 1)
Quarter: 2024Q3

REPORT INFORMATION
  Report Type: Spontaneous
  Country: US (occurrence: US)
  Receive Date: 20240923
  Receipt Date: 20240923
  Transmission Date: 20241016
  Serious: No
  Sender: ARDELYX
  Company Number: US-ARDELYX-2024ARDX006322

PATIENT
  Sex: Male

DRUGS (2)
  1. XPHOZAH [Suspect]
     Active Substance: TENAPANOR HYDROCHLORIDE
     Indication: Multiple drug therapy
     Route: 065
  2. XPHOZAH [Suspect]
     Active Substance: TENAPANOR HYDROCHLORIDE
     Indication: Hypophosphataemia

REACTIONS (3)
  - Diarrhoea [Recovering/Resolving]
  - Inappropriate schedule of product administration [Unknown]
  - Product use in unapproved indication [Unknown]
